FAERS Safety Report 6099511-5 (Version None)
Quarter: 2009Q1

REPORT INFORMATION
  Report Type: 
  Country: None (occurrence: None)
  Receive Date: 20090303
  Receipt Date: 20090223
  Transmission Date: 20090719
  Serious: Yes (Hospitalization)
  Sender: FDA-Public Use
  Company Number: US-BIOGENIDEC-2008BI035002

PATIENT
  Age: 68 Year
  Sex: Female

DRUGS (6)
  1. AVONEX [Suspect]
     Indication: MULTIPLE SCLEROSIS
     Route: 030
     Dates: start: 20060510
  2. ACTONEL [Concomitant]
     Indication: DRUG USE FOR UNKNOWN INDICATION
  3. BENAZEPRIL HYDROCHLORIDE [Concomitant]
     Indication: DRUG USE FOR UNKNOWN INDICATION
  4. THYROID REPLACEMENT [Concomitant]
     Indication: DRUG USE FOR UNKNOWN INDICATION
  5. KLOR-CON [Concomitant]
     Indication: DRUG USE FOR UNKNOWN INDICATION
  6. LASIX [Concomitant]
     Indication: DRUG USE FOR UNKNOWN INDICATION

REACTIONS (9)
  - CELLULITIS [None]
  - GAIT DISTURBANCE [None]
  - MOBILITY DECREASED [None]
  - MUSCULOSKELETAL DISORDER [None]
  - OEDEMA PERIPHERAL [None]
  - RASH [None]
  - SCRATCH [None]
  - SKIN LESION [None]
  - WOUND INFECTION [None]
